FAERS Safety Report 6529513-3 (Version None)
Quarter: 2010Q1

REPORT INFORMATION
  Report Type: 
  Country: None (occurrence: None)
  Receive Date: 20100107
  Receipt Date: 20091229
  Transmission Date: 20100710
  Serious: Yes (Hospitalization)
  Sender: FDA-Public Use
  Company Number: PHEH2009US18578

PATIENT
  Sex: Female

DRUGS (10)
  1. RECLAST [Suspect]
  2. LEVAQUIN [Suspect]
  3. LIPITOR [Concomitant]
  4. PREMARIN [Concomitant]
  5. PRILOSEC [Concomitant]
  6. MULTI-VITAMINS [Concomitant]
  7. FOLIC ACID [Concomitant]
  8. PREDNISONE [Concomitant]
  9. NORCO [Concomitant]
  10. ANTIHYPERTENSIVE DRUGS [Concomitant]

REACTIONS (7)
  - BLOOD CALCIUM DECREASED [None]
  - BLOOD GLUCOSE INCREASED [None]
  - BLOOD POTASSIUM DECREASED [None]
  - BLOOD PRESSURE INCREASED [None]
  - DYSPNOEA [None]
  - HEART RATE INCREASED [None]
  - WHITE BLOOD CELL COUNT INCREASED [None]
